FAERS Safety Report 8618761-4 (Version None)
Quarter: 2012Q3

REPORT INFORMATION
  Report Type: 
  Country: None (occurrence: None)
  Receive Date: 20120816
  Receipt Date: 20120816
  Transmission Date: 20120928
  Serious: Yes (Other)
  Sender: FDA-Public Use
  Company Number: None

PATIENT
  Age: 39 Year
  Sex: Female
  Weight: 71.2147 kg

DRUGS (1)
  1. ZOLPIDEM [Suspect]
     Indication: SLEEP DISORDER
     Dosage: ONE TAB PRN PO
     Route: 048
     Dates: start: 20120721, end: 20120815

REACTIONS (5)
  - PRODUCT SUBSTITUTION ISSUE [None]
  - HEADACHE [None]
  - SOMNOLENCE [None]
  - DRUG INEFFECTIVE [None]
  - PAIN [None]
